FAERS Safety Report 6887732-0 (Version None)
Quarter: 2010Q3

REPORT INFORMATION
  Report Type: 
  Country: None (occurrence: None)
  Receive Date: 20100722
  Receipt Date: 20060406
  Transmission Date: 20110219
  Serious: Yes (Death)
  Sender: FDA-Public Use
  Company Number: 200610049

PATIENT
  Age: 52 Year
  Sex: Male

DRUGS (3)
  1. BERINERT [Suspect]
     Indication: HEREDITARY ANGIOEDEMA
     Dosage: 500 IU, DAILY DOSE QUANTITY: 500, DAILY DOSE UNIT: IU INTRAVENOUS
     Route: 042
     Dates: start: 20060224
  2. CORTISON (CORTISONE ACETATE) [Concomitant]
  3. DIBONDRIN (DIPHENHYDRAMINE HYDROCHLORIDE) [Concomitant]

REACTIONS (6)
  - BASILAR ARTERY THROMBOSIS [None]
  - BRAIN OEDEMA [None]
  - BRAIN STEM HAEMORRHAGE [None]
  - CONVULSION [None]
  - ENCEPHALOMALACIA [None]
  - SUBARACHNOID HAEMORRHAGE [None]
